FAERS Safety Report 15743706 (Version 1)
Quarter: 2018Q4

REPORT INFORMATION
  Report Type: Other
  Country: ES (occurrence: ES)
  Receive Date: 20181220
  Receipt Date: 20181220
  Transmission Date: 20190205
  Serious: Yes (Life-Threatening, Hospitalization, Disabling)
  Sender: FDA-Public Use
  Company Number: ES-APOTEX-2018AP027653

PATIENT
  Age: 5 Year
  Sex: Female
  Weight: 16 kg

DRUGS (3)
  1. PARACETAMOL [Suspect]
     Active Substance: ACETAMINOPHEN
     Indication: PRODUCT USED FOR UNKNOWN INDICATION
     Dosage: UNK UNK, PRN
     Route: 048
     Dates: start: 201504, end: 201505
  2. IBUPROFEN. [Suspect]
     Active Substance: IBUPROFEN
     Indication: TONSILLITIS STREPTOCOCCAL
     Dosage: 5.5 ML, PRN
     Route: 048
     Dates: start: 20150407, end: 20150413
  3. PENILEVEL                          /00000903/ [Suspect]
     Active Substance: PENICILLIN G SODIUM
     Indication: PHARYNGOTONSILLITIS
     Dosage: 250 MG, Q.12H
     Route: 048
     Dates: start: 20150407, end: 20150417

REACTIONS (2)
  - Corneal disorder [Recovered/Resolved with Sequelae]
  - Toxic epidermal necrolysis [Recovered/Resolved with Sequelae]

NARRATIVE: CASE EVENT DATE: 20150502
